FAERS Safety Report 12103773 (Version 3)
Quarter: 2016Q4

REPORT INFORMATION
  Report Type: Spontaneous
  Country: US (occurrence: US)
  Receive Date: 20160223
  Receipt Date: 20161102
  Transmission Date: 20170206
  Serious: Yes (Other)
  Sender: FDA-Public Use
  Company Number: CHPA2016US002385

PATIENT

DRUGS (1)
  1. VOLTAREN [Suspect]
     Active Substance: DICLOFENAC SODIUM
     Indication: RASH
     Dosage: UNK, BID
     Route: 061

REACTIONS (6)
  - Off label use [Unknown]
  - Product quality issue [Unknown]
  - Wrong technique in product usage process [Unknown]
  - Inappropriate schedule of drug administration [Unknown]
  - Drug administered at inappropriate site [Unknown]
  - Systemic lupus erythematosus [Unknown]
